FAERS Safety Report 4373319-0 (Version None)
Quarter: 2004Q2

REPORT INFORMATION
  Report Type: 
  Country: None (occurrence: None)
  Receive Date: 20040602
  Receipt Date: 20040525
  Transmission Date: 20050107
  Serious: Yes (Hospitalization)
  Sender: FDA-Public Use
  Company Number: 2004035365

PATIENT
  Sex: Male

DRUGS (6)
  1. LOPID [Suspect]
     Indication: ILL-DEFINED DISORDER
     Dosage: 600 MG
  2. ACETYLSALICYLIC ACID (ACETYLSALICYLIC ACID) (ACETYLSALICYLIC ACID) [Suspect]
     Indication: ILL-DEFINED DISORDER
     Dosage: 325 MG
  3. SIMVASTATIN [Suspect]
     Indication: ILL-DEFINED DISORDER
     Dosage: 5 MG
  4. TRANDOLAPRIL (TRANDOLAPRIL) [Concomitant]
  5. ATENOLOL [Concomitant]
  6. HYDROCHLOROTHIAZIDE [Concomitant]

REACTIONS (1)
  - HIP ARTHROPLASTY [None]
